FAERS Safety Report 13360610 (Version 17)
Quarter: 2019Q1

REPORT INFORMATION
  Report Type: Spontaneous
  Country: US (occurrence: US)
  Receive Date: 20170322
  Receipt Date: 20190123
  Transmission Date: 20190417
  Serious: Yes (Hospitalization)
  Sender: FDA-Public Use
  Company Number: US-ACTELION-A-US2017-151231

PATIENT
  Age: 61 Year
  Sex: Female

DRUGS (5)
  1. UPTRAVI [Suspect]
     Active Substance: SELEXIPAG
     Dosage: 400 MCG, BID
     Route: 048
     Dates: start: 201812, end: 201812
  2. UPTRAVI [Suspect]
     Active Substance: SELEXIPAG
     Indication: PULMONARY ARTERIAL HYPERTENSION
     Dosage: UNK
     Route: 048
     Dates: start: 20181120
  3. OPSUMIT [Suspect]
     Active Substance: MACITENTAN
     Indication: PULMONARY ARTERIAL HYPERTENSION
     Dosage: 10 MG, QD
     Route: 048
     Dates: start: 20140101
  4. SILDENAFIL. [Concomitant]
     Active Substance: SILDENAFIL
     Dosage: 80 MG, TID
     Dates: start: 20120830
  5. SPIRONOLACTONE. [Concomitant]
     Active Substance: SPIRONOLACTONE
     Dosage: 100 MG, UNK

REACTIONS (27)
  - Pneumonia [Recovered/Resolved]
  - Right ventricular systolic pressure increased [Recovering/Resolving]
  - Skin infection [Unknown]
  - Rash [Unknown]
  - Peripheral swelling [Unknown]
  - Localised infection [Unknown]
  - Unevaluable event [Unknown]
  - Headache [Unknown]
  - Pain in extremity [Unknown]
  - Limb injury [Unknown]
  - Product dose omission [Recovered/Resolved]
  - Blood iron decreased [Unknown]
  - Dyspnoea exertional [Not Recovered/Not Resolved]
  - Dizziness [Not Recovered/Not Resolved]
  - Nocturnal dyspnoea [Recovered/Resolved]
  - Fatigue [Unknown]
  - Fluid retention [Not Recovered/Not Resolved]
  - Skin ulcer [Unknown]
  - Renal impairment [Unknown]
  - Oedema [Unknown]
  - Dyspnoea [Recovering/Resolving]
  - Influenza [Recovered/Resolved]
  - Oedema peripheral [Recovering/Resolving]
  - Cardiac failure [Recovering/Resolving]
  - Skin wound [Unknown]
  - Hypersensitivity [Unknown]
  - Syncope [Unknown]

NARRATIVE: CASE EVENT DATE: 201702
